FAERS Safety Report 4442210-3 (Version None)
Quarter: 2004Q3

REPORT INFORMATION
  Report Type: 
  Country: None (occurrence: None)
  Receive Date: 20040903
  Receipt Date: 20040726
  Transmission Date: 20050211
  Serious: Yes (Other)
  Sender: FDA-Public Use
  Company Number: 2004UW15794

PATIENT
  Age: 68 Year
  Sex: Male
  Weight: 65.7716 kg

DRUGS (4)
  1. CRESTOR [Suspect]
     Indication: CARDIAC DISORDER
  2. CRESTOR [Suspect]
     Indication: PROPHYLAXIS
  3. BENICAR [Concomitant]
  4. PLAVIX [Concomitant]

REACTIONS (3)
  - ARTHRALGIA [None]
  - MEMORY IMPAIRMENT [None]
  - PAIN [None]
